FAERS Safety Report 9856644 (Version 2)
Quarter: 2014Q1

REPORT INFORMATION
  Report Type: Spontaneous
  Country: US (occurrence: US)
  Receive Date: 20140130
  Receipt Date: 20140130
  Transmission Date: 20141002
  Serious: Yes (Hospitalization)
  Sender: FDA-Public Use
  Company Number: US-GLAXOSMITHKLINE-A0832632A

PATIENT
  Age: 36 Year
  Sex: Male
  Weight: 109.1 kg

DRUGS (7)
  1. AVANDIA [Suspect]
     Indication: DIABETES MELLITUS
     Dosage: 8MG PER DAY
     Route: 048
     Dates: start: 200206, end: 200805
  2. LISINOPRIL [Concomitant]
  3. VYTORIN [Concomitant]
  4. PREVACID [Concomitant]
  5. GLUCOPHAGE [Concomitant]
  6. FIORICET [Concomitant]
  7. ACTOS [Concomitant]

REACTIONS (1)
  - Myocardial infarction [Not Recovered/Not Resolved]
